FAERS Safety Report 25734946 (Version 1)
Quarter: 2025Q3

REPORT INFORMATION
  Report Type: Spontaneous
  Country: US (occurrence: US)
  Receive Date: 20250828
  Receipt Date: 20250828
  Transmission Date: 20251021
  Serious: No
  Sender: STRIDES
  Company Number: US-STRIDES ARCOLAB LIMITED-2025SP009653

PATIENT
  Sex: Female

DRUGS (1)
  1. MAGNESIUM\POTASSIUM\SODIUM [Suspect]
     Active Substance: MAGNESIUM\POTASSIUM\SODIUM
     Indication: Bowel preparation
     Route: 048

REACTIONS (1)
  - Blood glucose increased [Recovered/Resolved]

NARRATIVE: CASE EVENT DATE: 20250724
